FAERS Safety Report 9579863 (Version 1)
Quarter: 2013Q4

REPORT INFORMATION
  Report Type: Spontaneous
  Country: ZA (occurrence: ZA)
  Receive Date: 20131002
  Receipt Date: 20131002
  Transmission Date: 20140711
  Serious: Yes (Hospitalization)
  Sender: FDA-Public Use
  Company Number: ZA-009507513-1309ZAF013089

PATIENT
  Sex: Female

DRUGS (3)
  1. COZAAR COMP [Suspect]
     Dosage: 50 MG, UNK
     Route: 048
     Dates: start: 201209
  2. COZAAR COMP [Suspect]
     Dosage: 25 MG, UNK
     Route: 048
     Dates: start: 201009, end: 2012
  3. COZAAR COMP [Suspect]
     Dosage: 50 UNK, UNK
     Route: 048

REACTIONS (6)
  - Bronchopneumonia [Unknown]
  - Influenza [Unknown]
  - Headache [Recovered/Resolved]
  - Dizziness [Unknown]
  - Paraesthesia [Unknown]
  - Blood pressure decreased [Unknown]
